FAERS Safety Report 6219486-5 (Version None)
Quarter: 2009Q2

REPORT INFORMATION
  Report Type: 
  Country: None (occurrence: None)
  Receive Date: 20090609
  Receipt Date: 20090603
  Transmission Date: 20091009
  Serious: Yes (Death, Hospitalization, Other)
  Sender: FDA-Public Use
  Company Number: PHHY2009AT19176

PATIENT
  Age: 61 Year
  Sex: Female

DRUGS (10)
  1. ZOLEDRONIC ACID [Suspect]
     Dosage: 4 MG, QMO
     Dates: end: 20031001
  2. ZOLEDRONIC ACID [Suspect]
     Dosage: 4 MG, UNK
  3. ZOLEDRONIC ACID [Suspect]
     Dosage: 3.5 MG, UNK
  4. AREDIA [Suspect]
     Dosage: 90 MG, QMO
     Dates: start: 20031001
  5. LETROZOLE [Suspect]
     Dosage: UNK
     Dates: end: 20031001
  6. EXEMESTANE [Concomitant]
     Dosage: UNK
     Dates: start: 20031001
  7. CAPECITABINE [Concomitant]
  8. RADIOTHERAPY [Concomitant]
  9. GEMCITABINE [Concomitant]
     Dosage: UNK
     Dates: start: 20050301
  10. VINORELBINE [Concomitant]

REACTIONS (26)
  - ABSCESS [None]
  - ANAEMIA [None]
  - ANOREXIA [None]
  - APHASIA [None]
  - ARTHRALGIA [None]
  - CACHEXIA [None]
  - CREATININE RENAL CLEARANCE DECREASED [None]
  - DEHYDRATION [None]
  - DRUG TOLERANCE DECREASED [None]
  - FATIGUE [None]
  - FISTULA [None]
  - MALIGNANT NEOPLASM PROGRESSION [None]
  - METASTASES TO BONE [None]
  - METASTASES TO CENTRAL NERVOUS SYSTEM [None]
  - METASTASES TO LIVER [None]
  - METASTASIS [None]
  - NAUSEA [None]
  - OSTEONECROSIS [None]
  - OSTEOSCLEROSIS [None]
  - PAIN [None]
  - PAIN IN JAW [None]
  - PURULENT DISCHARGE [None]
  - SWELLING [None]
  - TRANSIENT ISCHAEMIC ATTACK [None]
  - TUMOUR MARKER INCREASED [None]
  - VOMITING [None]
